FAERS Safety Report 9607466 (Version 1)
Quarter: 2013Q4

REPORT INFORMATION
  Report Type: Spontaneous
  Country: US (occurrence: None)
  Receive Date: 20131007
  Receipt Date: 20131007
  Transmission Date: 20140711
  Serious: No
  Sender: FDA-Public Use
  Company Number: 13AE020

PATIENT
  Age: 73 Year
  Sex: Female

DRUGS (2)
  1. DOXYLAMINE SUCCINATE [Suspect]
     Dosage: 1 TABLET BY MOUTH
     Dates: start: 20130930
  2. AMOXICILLIN [Concomitant]

REACTIONS (1)
  - Throat irritation [None]
